FAERS Safety Report 7510783-X (Version None)
Quarter: 2011Q2

REPORT INFORMATION
  Report Type: 
  Country: None (occurrence: None)
  Receive Date: 20110530
  Receipt Date: 20110519
  Transmission Date: 20111010
  Serious: Yes (Hospitalization, Other)
  Sender: FDA-Public Use
  Company Number: PHEH2008US04279

PATIENT
  Sex: Male
  Weight: 108.84 kg

DRUGS (30)
  1. MAALOX                                  /NET/ [Concomitant]
  2. ASACOL [Concomitant]
     Indication: COLITIS
  3. PERIDEX [Concomitant]
     Dosage: 10 MG, BID
  4. CHEMOTHERAPEUTICS NOS [Concomitant]
     Route: 048
  5. ASPIRIN [Concomitant]
  6. GLYBURIDE [Concomitant]
  7. METOPROLOL TARTRATE [Concomitant]
  8. OMEPRAZOLE [Concomitant]
  9. ZOMETA [Suspect]
     Indication: NEOPLASM MALIGNANT
     Dosage: 4.0 MG, UNK
     Route: 042
     Dates: start: 20031007, end: 20040901
  10. ADVIL LIQUI-GELS [Concomitant]
     Dosage: UNK / PRN
  11. RADIATION [Concomitant]
  12. ERYTHROMYCIN [Concomitant]
     Dosage: 500 UNK, UNK
  13. AMOXICILLIN [Concomitant]
     Dosage: 500MG, 1 TABLET 4 X DAY
  14. ACETAMINOPHEN [Concomitant]
  15. GLIPIZIDE [Concomitant]
  16. DILAUDID [Concomitant]
     Indication: PAIN
  17. PRILOSEC [Concomitant]
  18. LEVAQUIN [Concomitant]
  19. PROTONIX [Concomitant]
  20. PERCOCET [Concomitant]
  21. PLAVIX [Concomitant]
  22. LANTUS [Concomitant]
  23. INTERFERON ALFA [Concomitant]
  24. MESALAMINE [Concomitant]
  25. LOPRESSOR [Concomitant]
  26. LIPITOR [Concomitant]
  27. SUTENT [Concomitant]
  28. FLAGYL [Concomitant]
  29. LOVENOX [Concomitant]
  30. LASIX [Concomitant]
     Dosage: 20 MG, UNK

REACTIONS (67)
  - OSTEONECROSIS OF JAW [None]
  - ANXIETY [None]
  - WEIGHT INCREASED [None]
  - SINUS TACHYCARDIA [None]
  - PANCREATITIS [None]
  - PAPILLOMA [None]
  - HORDEOLUM [None]
  - PLEURAL FIBROSIS [None]
  - HYPOAESTHESIA [None]
  - OSTEITIS [None]
  - OSTEOPENIA [None]
  - CORONARY ARTERY STENOSIS [None]
  - DISABILITY [None]
  - ORTHOPNOEA [None]
  - SEBORRHOEIC KERATOSIS [None]
  - PALLOR [None]
  - ATELECTASIS [None]
  - EMPHYSEMA [None]
  - PULMONARY ARTERY DILATATION [None]
  - MYOCARDIAL INFARCTION [None]
  - CHOLECYSTITIS ACUTE [None]
  - BILIARY COLIC [None]
  - EYELID CYST [None]
  - DYSPNOEA EXERTIONAL [None]
  - FATIGUE [None]
  - PULMONARY ARTERIAL HYPERTENSION [None]
  - PAIN IN JAW [None]
  - ACTINOMYCES TEST POSITIVE [None]
  - CARDIAC FAILURE CONGESTIVE [None]
  - DIARRHOEA HAEMORRHAGIC [None]
  - RENAL CYST [None]
  - ABSCESS ORAL [None]
  - PSYCHIATRIC SYMPTOM [None]
  - HEPATIC STEATOSIS [None]
  - PNEUMONIA [None]
  - RENAL FAILURE [None]
  - DEHYDRATION [None]
  - ABDOMINAL PAIN UPPER [None]
  - VEIN DISORDER [None]
  - METASTASES TO LIVER [None]
  - PULMONARY MASS [None]
  - ADRENAL MASS [None]
  - LYMPHADENOPATHY [None]
  - OSTEOMYELITIS [None]
  - GASTROINTESTINAL ANGIODYSPLASIA [None]
  - ANHEDONIA [None]
  - ANAEMIA [None]
  - HIATUS HERNIA [None]
  - VOMITING [None]
  - INFLAMMATORY BOWEL DISEASE [None]
  - OSTEOARTHRITIS [None]
  - OSTEOSCLEROSIS [None]
  - PROSTATIC CALCIFICATION [None]
  - INJURY [None]
  - GASTROOESOPHAGEAL REFLUX DISEASE [None]
  - TOOTHACHE [None]
  - ASTHENIA [None]
  - METASTASES TO LUNG [None]
  - DIVERTICULUM [None]
  - RIB FRACTURE [None]
  - OSTEOLYSIS [None]
  - EJECTION FRACTION DECREASED [None]
  - PAIN [None]
  - CHOLELITHIASIS [None]
  - NYSTAGMUS [None]
  - EYELID PTOSIS [None]
  - PLEURAL EFFUSION [None]
